FAERS Safety Report 8364408-4 (Version None)
Quarter: 2012Q2

REPORT INFORMATION
  Report Type: 
  Country: None (occurrence: None)
  Receive Date: 20120516
  Receipt Date: 20120510
  Transmission Date: 20120825
  Serious: Yes (Hospitalization)
  Sender: FDA-Public Use
  Company Number: US-BAYER-2011-107974

PATIENT
  Age: 22 Year
  Sex: Female
  Weight: 91 kg

DRUGS (8)
  1. BISMUTH SUBSALICYLATE [Concomitant]
  2. ADVAIR DISKUS 100/50 [Concomitant]
     Dosage: UNK UNK, QD
  3. LEXAPRO [Concomitant]
     Dosage: 10 MG, QD
  4. CLARITIN [Concomitant]
     Dosage: 10 MG, QD
  5. NSAID'S [Concomitant]
     Dosage: UNK
     Dates: start: 19980101
  6. ASPIRIN [Concomitant]
  7. FLONASE [Concomitant]
     Dosage: UNK UNK, QD
     Route: 045
  8. YASMIN [Suspect]
     Indication: CONTRACEPTION
     Route: 048
     Dates: start: 20060126, end: 20080401

REACTIONS (7)
  - CHOLECYSTITIS CHRONIC [None]
  - ANXIETY [None]
  - EMOTIONAL DISTRESS [None]
  - CHOLELITHIASIS [None]
  - MENTAL DISORDER [None]
  - PAIN [None]
  - GENERAL PHYSICAL HEALTH DETERIORATION [None]
